FAERS Safety Report 6893098-2 (Version None)
Quarter: 2010Q3

REPORT INFORMATION
  Report Type: 
  Country: None (occurrence: None)
  Receive Date: 20100731
  Receipt Date: 20090505
  Transmission Date: 20110219
  Serious: No
  Sender: FDA-Public Use
  Company Number: US-PFIZER INC-2009210961

PATIENT
  Sex: Female
  Weight: 58.957 kg

DRUGS (1)
  1. NEURONTIN [Suspect]
     Indication: MYALGIA
     Dosage: 300 MG, UNK
     Dates: start: 20030101

REACTIONS (4)
  - ERYTHEMA [None]
  - FIBROMYALGIA [None]
  - RHEUMATOID FACTOR INCREASED [None]
  - SWELLING [None]
